FAERS Safety Report 11058529 (Version 1)
Quarter: 2015Q2

REPORT INFORMATION
  Report Type: Spontaneous
  Country: US (occurrence: None)
  Receive Date: 20150422
  Receipt Date: 20150422
  Transmission Date: 20150821
  Serious: No
  Sender: FDA-Public Use
  Company Number: None

PATIENT
  Age: 50 Year
  Sex: Male
  Weight: 96.2 kg

DRUGS (1)
  1. ETODOLAC. [Suspect]
     Active Substance: ETODOLAC
     Dosage: 1 TAB  BID  PO
     Route: 048
     Dates: start: 20100614, end: 20100630

REACTIONS (1)
  - Rash [None]

NARRATIVE: CASE EVENT DATE: 20100630
